FAERS Safety Report 24793603 (Version 1)
Quarter: 2024Q4

REPORT INFORMATION
  Report Type: Spontaneous
  Country: US (occurrence: None)
  Receive Date: 20241230
  Receipt Date: 20241230
  Transmission Date: 20250115
  Serious: Yes (Disabling)
  Sender: Public
  Company Number: None

PATIENT
  Age: 68 Year
  Sex: Female
  Weight: 54 kg

DRUGS (7)
  1. AVASTIN [Suspect]
     Active Substance: BEVACIZUMAB
     Indication: Ovarian cancer metastatic
     Dates: start: 20241011, end: 20241025
  2. CARBOPLATIN [Suspect]
     Active Substance: CARBOPLATIN
  3. telmisartan, [Concomitant]
  4. amlodipine, [Concomitant]
  5. chlorthalidone, [Concomitant]
  6. PANTOPRAZOLE SODIUM [Concomitant]
     Active Substance: PANTOPRAZOLE SODIUM
  7. DOXORUBICIN [Suspect]
     Active Substance: DOXORUBICIN

REACTIONS (4)
  - Blood pressure increased [None]
  - Left atrial enlargement [None]
  - Quality of life decreased [None]
  - Heart rate decreased [None]

NARRATIVE: CASE EVENT DATE: 20241025
